FAERS Safety Report 5070704-9 (Version None)
Quarter: 2006Q3

REPORT INFORMATION
  Report Type: 
  Country: None (occurrence: None)
  Receive Date: 20060804
  Receipt Date: 20051003
  Transmission Date: 20061208
  Serious: No
  Sender: FDA-Public Use
  Company Number: US-GLAXOSMITHKLINE-A0576814A

PATIENT
  Age: 28 Year
  Sex: Male

DRUGS (1)
  1. EQUATE NICOTINE GUM 4MG [Suspect]
     Dates: start: 20050919, end: 20051002

REACTIONS (2)
  - JAW DISORDER [None]
  - OEDEMA MUCOSAL [None]
